FAERS Safety Report 5202345-4 (Version None)
Quarter: 2007Q1

REPORT INFORMATION
  Report Type: 
  Country: None (occurrence: None)
  Receive Date: 20070109
  Receipt Date: 20070103
  Transmission Date: 20070707
  Serious: Yes (Hospitalization)
  Sender: FDA-Public Use
  Company Number: GB-MERCK-0701GBR00037

PATIENT
  Age: 86 Year
  Sex: Male

DRUGS (8)
  1. DECADRON [Suspect]
     Route: 048
     Dates: start: 20060829, end: 20060831
  2. ASPIRIN [Suspect]
     Indication: PROPHYLAXIS
     Route: 048
     Dates: start: 20060817
  3. ENOXAPARIN SODIUM [Suspect]
     Route: 058
     Dates: start: 20060816, end: 20060901
  4. CLOPIDOGREL BISULFATE [Suspect]
     Indication: PROPHYLAXIS
     Route: 048
     Dates: start: 20060817
  5. BISOPROLOL [Concomitant]
     Indication: DRESSLER'S SYNDROME
     Route: 048
     Dates: start: 20060818
  6. FUROSEMIDE [Concomitant]
     Indication: DRESSLER'S SYNDROME
     Route: 048
     Dates: start: 20060829
  7. ISOSORBIDE MONONITRATE [Concomitant]
     Indication: DRESSLER'S SYNDROME
     Route: 048
     Dates: start: 20060829
  8. METRONIDAZOLE [Concomitant]
     Indication: INFECTION
     Route: 042
     Dates: start: 20060902

REACTIONS (1)
  - HAEMATURIA [None]
